FAERS Safety Report 6458242-X (Version None)
Quarter: 2009Q4

REPORT INFORMATION
  Report Type: 
  Country: None (occurrence: None)
  Receive Date: 20091125
  Receipt Date: 20091117
  Transmission Date: 20100525
  Serious: Yes (Hospitalization, Other)
  Sender: FDA-Public Use
  Company Number: US-MERCK-0908USA03741

PATIENT
  Age: 83 Year
  Sex: Female
  Weight: 64 kg

DRUGS (5)
  1. FOSAMAX [Suspect]
     Indication: OSTEOPOROSIS
     Route: 048
     Dates: start: 19990401, end: 20070130
  2. FOSAMAX [Suspect]
     Route: 048
     Dates: end: 20081111
  3. LEVOTHROID [Concomitant]
     Indication: HYPOTHYROIDISM
     Route: 065
     Dates: start: 19990101
  4. BONIVA [Suspect]
     Indication: OSTEOPOROSIS
     Route: 065
     Dates: start: 20080101, end: 20080401
  5. FOSAMAX [Concomitant]
     Route: 048
     Dates: start: 20090401, end: 20091020

REACTIONS (79)
  - ABDOMINAL DISCOMFORT [None]
  - ADVERSE EVENT [None]
  - ALLERGY TO ANIMAL [None]
  - ARTHRALGIA [None]
  - ARTHROPATHY [None]
  - ASTHENIA [None]
  - BACK PAIN [None]
  - BLADDER DISORDER [None]
  - BLOOD GLUCOSE INCREASED [None]
  - BONE DENSITY DECREASED [None]
  - CARDIAC FAILURE CONGESTIVE [None]
  - CHANGE OF BOWEL HABIT [None]
  - CHILLS [None]
  - CHOLECYSTITIS ACUTE [None]
  - CHOLELITHIASIS [None]
  - CHRONIC OBSTRUCTIVE PULMONARY DISEASE [None]
  - DEAFNESS [None]
  - DECREASED APPETITE [None]
  - DEHYDRATION [None]
  - DENTAL CARIES [None]
  - DEPRESSION [None]
  - DIARRHOEA [None]
  - DIZZINESS [None]
  - DRUG INEFFECTIVE [None]
  - DRUG INTOLERANCE [None]
  - DRY MOUTH [None]
  - DYSPNOEA EXERTIONAL [None]
  - EAR DISCOMFORT [None]
  - ERUCTATION [None]
  - EUSTACHIAN TUBE DYSFUNCTION [None]
  - FATIGUE [None]
  - FLATULENCE [None]
  - GASTRITIS [None]
  - GENERAL PHYSICAL HEALTH DETERIORATION [None]
  - GENERAL SYMPTOM [None]
  - GINGIVAL DISORDER [None]
  - HYPERHIDROSIS [None]
  - HYPERLIPIDAEMIA [None]
  - HYPERTENSION [None]
  - IMPAIRED HEALING [None]
  - INCREASED TENDENCY TO BRUISE [None]
  - INFECTION [None]
  - INFLUENZA LIKE ILLNESS [None]
  - LEFT VENTRICULAR HYPERTROPHY [None]
  - LEUKOCYTOSIS [None]
  - MEMORY IMPAIRMENT [None]
  - NAUSEA [None]
  - NECK PAIN [None]
  - NERVOUSNESS [None]
  - NEUROPATHY PERIPHERAL [None]
  - NOCTURIA [None]
  - ORAL CANDIDIASIS [None]
  - ORAL DISORDER [None]
  - ORAL INFECTION [None]
  - ORAL TORUS [None]
  - OSTEOARTHRITIS [None]
  - OSTEOMYELITIS [None]
  - OSTEONECROSIS [None]
  - PAIN [None]
  - PAIN IN EXTREMITY [None]
  - POLLAKIURIA [None]
  - PRURITUS ALLERGIC [None]
  - PRURITUS GENERALISED [None]
  - SINUS DISORDER [None]
  - SKIN LESION [None]
  - SLEEP DISORDER [None]
  - STOMATITIS [None]
  - TEMPERATURE INTOLERANCE [None]
  - THIRST [None]
  - THYROID DISORDER [None]
  - TINNITUS [None]
  - TOOTH ABSCESS [None]
  - TOOTH DEVELOPMENT DISORDER [None]
  - TOOTH DISORDER [None]
  - TREMOR [None]
  - TYPE 2 DIABETES MELLITUS [None]
  - URINARY INCONTINENCE [None]
  - VARICOSE VEIN [None]
  - WEIGHT DECREASED [None]
